FAERS Safety Report 5130034-3 (Version None)
Quarter: 2006Q4

REPORT INFORMATION
  Report Type: 
  Country: None (occurrence: None)
  Receive Date: 20061018
  Receipt Date: 20061013
  Transmission Date: 20070319
  Serious: Yes (Hospitalization)
  Sender: FDA-Public Use
  Company Number: CG-MERCK-0610USA09602

PATIENT
  Age: 17 Year
  Sex: Male
  Weight: 55 kg

DRUGS (1)
  1. STROMECTOL [Suspect]
     Route: 048
     Dates: start: 20060227, end: 20060227

REACTIONS (8)
  - CONFUSIONAL STATE [None]
  - DEPRESSED LEVEL OF CONSCIOUSNESS [None]
  - DRUG TOXICITY [None]
  - ENCEPHALOPATHY [None]
  - EYE DISORDER [None]
  - EYELID OEDEMA [None]
  - HEADACHE [None]
  - PRURITUS [None]
